FAERS Safety Report 13486925 (Version 1)
Quarter: 2017Q2

REPORT INFORMATION
  Report Type: Spontaneous
  Country: FR (occurrence: FR)
  Receive Date: 20170426
  Receipt Date: 20170426
  Transmission Date: 20170830
  Serious: Yes (Hospitalization)
  Sender: FDA-Public Use
  Company Number: FR-BAYER-2017-076065

PATIENT
  Age: 56 Year
  Sex: Female

DRUGS (3)
  1. BETAFERON [Suspect]
     Active Substance: INTERFERON BETA-1B
     Indication: MULTIPLE SCLEROSIS
     Dosage: UNK
     Route: 058
     Dates: start: 20161122, end: 201703
  2. FLUTICASONE. [Concomitant]
     Active Substance: FLUTICASONE
     Indication: ERYTHEMA
     Dosage: UNK
  3. IBUPROFEN W/PARACETAMOL [Concomitant]
     Indication: INFLUENZA LIKE ILLNESS
     Dosage: UNK

REACTIONS (1)
  - Infectious colitis [Recovering/Resolving]

NARRATIVE: CASE EVENT DATE: 20170306
